FAERS Safety Report 8950356 (Version 1)
Quarter: 2012Q4

REPORT INFORMATION
  Report Type: Spontaneous
  Country: US (occurrence: None)
  Receive Date: 20121130
  Receipt Date: 20121130
  Transmission Date: 20130627
  Serious: Yes (Other)
  Sender: FDA-Public Use
  Company Number: None

PATIENT
  Age: 59 Year
  Sex: Female
  Weight: 113.6 kg

DRUGS (1)
  1. ZITHROMAX [Suspect]
     Dates: start: 20101229, end: 20110101

REACTIONS (3)
  - Pyrexia [None]
  - Rash maculo-papular [None]
  - Transaminases increased [None]
